FAERS Safety Report 17137224 (Version 2)
Quarter: 2020Q3

REPORT INFORMATION
  Report Type: Report from Study
  Country: None (occurrence: CA)
  Receive Date: 20191210
  Receipt Date: 20200217
  Transmission Date: 20201104
  Serious: Yes (Life-Threatening)
  Sender: FDA-Public Use
  Company Number: CA-ABBVIE-19P-028-3180032-00

PATIENT
  Age: 81 Year
  Sex: Male
  Weight: 102 kg

DRUGS (26)
  1. VITAMIN B12 [Concomitant]
     Active Substance: CYANOCOBALAMIN
     Indication: PRODUCT USED FOR UNKNOWN INDICATION
     Route: 048
     Dates: start: 2003
  2. TAMSULOSIN [Concomitant]
     Active Substance: TAMSULOSIN
     Indication: BENIGN PROSTATIC HYPERPLASIA
     Route: 048
     Dates: start: 20181217
  3. ONDANSETRON [Concomitant]
     Active Substance: ONDANSETRON
     Indication: PROPHYLAXIS
     Route: 048
     Dates: start: 20190620
  4. AMPLODIPINE [Concomitant]
     Indication: ATRIAL FIBRILLATION
     Route: 048
     Dates: start: 20190625
  5. GRAVOL [Concomitant]
     Active Substance: DIMENHYDRINATE
     Indication: PROPHYLAXIS
     Route: 048
     Dates: start: 20190121
  6. IDASANUTLIN. [Suspect]
     Active Substance: IDASANUTLIN
     Dosage: ON 25 JUN 2019 RECEIVED MOST RECENT DOSE 100MG PRIOR TO DECREASED PLATELET COUNT
     Route: 048
  7. INSIOLTO RESPIMAT [Concomitant]
     Indication: ASTHMA
     Route: 055
     Dates: start: 2017
  8. SYMIBICORT [Concomitant]
     Indication: ASTHMA
     Dosage: INHALED
     Route: 055
     Dates: start: 200811
  9. RIVAROXABAN [Concomitant]
     Active Substance: RIVAROXABAN
     Indication: ATRIAL FIBRILLATION
     Route: 048
     Dates: start: 20190603
  10. INSIOLTO RESPIMAT [Concomitant]
     Indication: CHRONIC OBSTRUCTIVE PULMONARY DISEASE
  11. ONDANSETRON [Concomitant]
     Active Substance: ONDANSETRON
     Route: 048
     Dates: start: 20190121, end: 20190221
  12. LEVOFLOXACIN. [Concomitant]
     Active Substance: LEVOFLOXACIN
     Indication: TOOTH INFECTION
     Route: 048
     Dates: start: 20190312, end: 20190426
  13. ALLOPURINOL. [Concomitant]
     Active Substance: ALLOPURINOL
     Indication: PROPHYLAXIS
     Route: 048
     Dates: start: 2005
  14. LOPERAMIDE [Concomitant]
     Active Substance: LOPERAMIDE
     Indication: PROPHYLAXIS
     Route: 048
     Dates: start: 20190121, end: 20190221
  15. IDASANUTLIN. [Suspect]
     Active Substance: IDASANUTLIN
     Indication: ACUTE MYELOID LEUKAEMIA
     Dosage: DAY 1?5 OF 28?DAY CYCLE; ON 25 JAN 2019 RECEIVED MOST RECENT DOSE OF 150MG.
     Route: 048
     Dates: start: 20181210
  16. MONOVISC [Concomitant]
     Active Substance: DEVICE
     Indication: ARTHRALGIA
     Route: 065
     Dates: start: 2015
  17. VENTOLIN [Concomitant]
     Active Substance: ALBUTEROL SULFATE
     Indication: ASTHMA
     Route: 055
     Dates: start: 1998
  18. ATIVAN [Concomitant]
     Active Substance: LORAZEPAM
     Indication: PROPHYLAXIS
     Route: 048
     Dates: start: 20190121
  19. COVERSYL [Concomitant]
     Active Substance: PERINDOPRIL
     Indication: ATRIAL FIBRILLATION
     Route: 048
     Dates: start: 20190625
  20. VENETOCLAX. [Suspect]
     Active Substance: VENETOCLAX
     Indication: ACUTE MYELOID LEUKAEMIA
     Dosage: ON 25 JAN 2019 RECEIVED MOST RECENT DOSE OF 600 MG; FREQUENCY:ONE IN ONE DAY.
     Route: 048
     Dates: start: 20181210
  21. VENETOCLAX. [Suspect]
     Active Substance: VENETOCLAX
     Dosage: ON 16 JUL 2019 RECEIVED MOST RECENT DOSE 400MG; FREQUENCY:ONE IN ONE DAY.
     Route: 048
  22. SYMIBICORT [Concomitant]
     Indication: CHRONIC OBSTRUCTIVE PULMONARY DISEASE
  23. COVERSYL [Concomitant]
     Active Substance: PERINDOPRIL
     Route: 048
     Dates: start: 2003
  24. AMOXIL [Concomitant]
     Active Substance: AMOXICILLIN
     Indication: TOOTH INFECTION
     Route: 048
     Dates: start: 20190409
  25. DILTIZEM [Concomitant]
     Indication: ATRIAL FIBRILLATION
     Route: 048
     Dates: start: 20190501, end: 20190612
  26. COQ10?OMEGA 3 [Concomitant]
     Indication: PRODUCT USED FOR UNKNOWN INDICATION
     Route: 065

REACTIONS (2)
  - Platelet count decreased [Not Recovered/Not Resolved]
  - Platelet count decreased [Recovered/Resolved]

NARRATIVE: CASE EVENT DATE: 20190219
